FAERS Safety Report 16926231 (Version 2)
Quarter: 2021Q1

REPORT INFORMATION
  Report Type: Spontaneous
  Country: GB (occurrence: GB)
  Receive Date: 20191016
  Receipt Date: 20210304
  Transmission Date: 20210419
  Serious: Yes (Death, Life-Threatening, Hospitalization, Other)
  Sender: FDA-Public Use
  Company Number: GB-MYLANLABS-2019M1097263

PATIENT
  Age: 84 Year
  Sex: Male
  Weight: 82.55 kg

DRUGS (11)
  1. SALBUTAMOL [Concomitant]
     Active Substance: ALBUTEROL
     Dosage: UNK
     Route: 055
  2. LANSOPRAZOLE. [Concomitant]
     Active Substance: LANSOPRAZOLE
     Dosage: UNK
  3. BECLOMETASONE [Concomitant]
     Active Substance: BECLOMETHASONE DIPROPIONATE
     Dosage: UNK
     Route: 055
  4. NIFEDIPINE. [Concomitant]
     Active Substance: NIFEDIPINE
     Indication: BLOOD PRESSURE ABNORMAL
     Dosage: 30 UNK
  5. ACETYLSALICYLIC ACID [Concomitant]
     Active Substance: ASPIRIN
     Dosage: 75 MILLIGRAM
  6. FUSIDIC ACID [Concomitant]
     Active Substance: FUSIDIC ACID
     Dosage: UNK
     Dates: start: 20190418
  7. VANCOMYCIN [Concomitant]
     Active Substance: VANCOMYCIN
     Dosage: UNK
     Route: 042
  8. FLUCLOXACILLIN [Concomitant]
     Active Substance: FLUCLOXACILLIN
     Dosage: UNK
     Route: 042
     Dates: start: 20190418
  9. DOXYCYCLINE ACCORD [Suspect]
     Active Substance: DOXYCYCLINE
     Indication: OSTEOMYELITIS
     Dosage: 200 MILLIGRAM (EACH MORNING FOR 4?6 WEEKS)
     Route: 048
     Dates: start: 20190424, end: 20190509
  10. WARFARIN [Concomitant]
     Active Substance: WARFARIN
     Dosage: UNK
  11. FORMOTEROL [Concomitant]
     Active Substance: FORMOTEROL
     Dosage: UNK
     Route: 055

REACTIONS (3)
  - Dysphagia [Not Recovered/Not Resolved]
  - Dyspnoea [Not Recovered/Not Resolved]
  - Respiratory failure [Fatal]

NARRATIVE: CASE EVENT DATE: 20190510
